FAERS Safety Report 14718583 (Version 2)
Quarter: 2018Q2

REPORT INFORMATION
  Report Type: Report from Study
  Country: None (occurrence: US)
  Receive Date: 20180404
  Receipt Date: 20180412
  Transmission Date: 20180711
  Serious: Yes (Other)
  Sender: FDA-Public Use
  Company Number: US-ABBVIE-17K-163-2149503-00

PATIENT
  Age: 57 Year
  Sex: Male

DRUGS (2)
  1. HUMIRA [Suspect]
     Active Substance: ADALIMUMAB
     Route: 058
  2. HUMIRA [Suspect]
     Active Substance: ADALIMUMAB
     Indication: HIDRADENITIS
     Route: 058

REACTIONS (7)
  - Weight decreased [Unknown]
  - Type 2 diabetes mellitus [Unknown]
  - Stress [Unknown]
  - Hidradenitis [Unknown]
  - Drug effect variable [Unknown]
  - Large intestine polyp [Unknown]
  - Dyspepsia [Unknown]

NARRATIVE: CASE EVENT DATE: 201710
